FAERS Safety Report 4268744-2 (Version None)
Quarter: 2004Q1

REPORT INFORMATION
  Report Type: 
  Country: None (occurrence: None)
  Receive Date: 20040112
  Receipt Date: 20040112
  Transmission Date: 20041129
  Serious: Yes (Death)
  Sender: FDA-Public Use
  Company Number: None

PATIENT
  Age: 55 Year
  Sex: Male
  Weight: 90.2 kg

DRUGS (1)
  1. TEQUIN [Suspect]

REACTIONS (6)
  - ARRHYTHMIA [None]
  - BRAIN DEATH [None]
  - CARDIAC ARREST [None]
  - ENCEPHALOPATHY [None]
  - RENAL FAILURE ACUTE [None]
  - VENTRICULAR FIBRILLATION [None]
